FAERS Safety Report 7310943-7 (Version None)
Quarter: 2011Q1

REPORT INFORMATION
  Report Type: 
  Country: None (occurrence: None)
  Receive Date: 20110224
  Receipt Date: 20110211
  Transmission Date: 20110831
  Serious: Yes (Hospitalization, Other)
  Sender: FDA-Public Use
  Company Number: PHHY2009CA47217

PATIENT
  Sex: Male

DRUGS (1)
  1. ZOMETA [Suspect]
     Indication: PROSTATE CANCER
     Dosage: 4 MG EVERY 12 WEEKS
     Route: 042
     Dates: start: 20090721

REACTIONS (21)
  - GENERAL PHYSICAL HEALTH DETERIORATION [None]
  - CREATININE RENAL CLEARANCE DECREASED [None]
  - MEAN CELL VOLUME DECREASED [None]
  - RED CELL DISTRIBUTION WIDTH INCREASED [None]
  - HAEMATOCRIT DECREASED [None]
  - DYSURIA [None]
  - CREATINE URINE DECREASED [None]
  - BLOOD UREA INCREASED [None]
  - FALL [None]
  - HAEMOGLOBIN DECREASED [None]
  - HEADACHE [None]
  - COGNITIVE DISORDER [None]
  - INCORRECT DOSE ADMINISTERED [None]
  - SERUM FERRITIN DECREASED [None]
  - BLOOD PRESSURE DECREASED [None]
  - DEHYDRATION [None]
  - MALAISE [None]
  - BLOOD CALCIUM DECREASED [None]
  - PALLOR [None]
  - DIZZINESS [None]
  - RED BLOOD CELL COUNT DECREASED [None]
